FAERS Safety Report 22064512 (Version 1)
Quarter: 2023Q1

REPORT INFORMATION
  Report Type: Spontaneous
  Country: US (occurrence: US)
  Receive Date: 20230306
  Receipt Date: 20230306
  Transmission Date: 20230418
  Serious: Yes (Hospitalization)
  Sender: FDA-Public Use
  Company Number: US-PTC THERAPEUTICS INC.-US-2022PTC001205

PATIENT
  Age: 9 Year
  Sex: Male
  Weight: 39.683 kg

DRUGS (2)
  1. EMFLAZA [Suspect]
     Active Substance: DEFLAZACORT
     Indication: Duchenne muscular dystrophy
     Dosage: 24 MG, QD
     Route: 048
     Dates: start: 20210914
  2. INVESTIGATIONAL PRODUCT [Concomitant]
     Active Substance: INVESTIGATIONAL PRODUCT

REACTIONS (1)
  - Femur fracture [Not Recovered/Not Resolved]

NARRATIVE: CASE EVENT DATE: 20220710
